FAERS Safety Report 5800075-9 (Version None)
Quarter: 2008Q3

REPORT INFORMATION
  Report Type: 
  Country: None (occurrence: None)
  Receive Date: 20080703
  Receipt Date: 20080624
  Transmission Date: 20090109
  Serious: Yes (Other)
  Sender: FDA-Public Use
  Company Number: US-ROCHE-572378

PATIENT
  Sex: Female

DRUGS (3)
  1. PEGASYS [Suspect]
     Dosage: THE PATIENT TOOK A TOTAL OF TWO PEGASYS DOSES
     Route: 065
  2. RIBAVIRIN [Suspect]
     Dosage: DOSE: 1200
     Route: 065
  3. UNSPECIFIED DRUGS [Concomitant]

REACTIONS (1)
  - THROMBOPHLEBITIS MIGRANS [None]
